FAERS Safety Report 7252027-2 (Version None)
Quarter: 2011Q1

REPORT INFORMATION
  Report Type: 
  Country: None (occurrence: None)
  Receive Date: 20110128
  Receipt Date: 20100118
  Transmission Date: 20110831
  Serious: No
  Sender: FDA-Public Use
  Company Number: US-ABBOTT-10P-163-0620821-00

PATIENT
  Sex: Male

DRUGS (4)
  1. HUMIRA [Suspect]
     Indication: PSORIATIC ARTHROPATHY
     Dates: start: 20050101, end: 20090101
  2. HUMIRA [Suspect]
     Route: 058
     Dates: start: 20091201, end: 20091228
  3. HUMIRA [Suspect]
     Route: 058
     Dates: start: 20090101, end: 20091201
  4. CELEBREX [Concomitant]
     Indication: ARTHRITIS
     Dosage: UNKNOWN

REACTIONS (1)
  - NASOPHARYNGITIS [None]
